FAERS Safety Report 10228571 (Version 3)
Quarter: 2015Q2

REPORT INFORMATION
  Report Type: Spontaneous
  Country: US (occurrence: US)
  Receive Date: 20140610
  Receipt Date: 20150513
  Transmission Date: 20150821
  Serious: Yes (Hospitalization)
  Sender: FDA-Public Use
  Company Number: US-BAYER-2014-084934

PATIENT
  Age: 40 Year
  Sex: Female
  Weight: 79.37 kg

DRUGS (14)
  1. PLETAL [Concomitant]
     Active Substance: CILOSTAZOL
  2. VICODIN [Concomitant]
     Active Substance: ACETAMINOPHEN\HYDROCODONE BITARTRATE
  3. OCELLA [Suspect]
     Active Substance: DROSPIRENONE\ETHINYL ESTRADIOL
     Indication: POLYCYSTIC OVARIES
     Dosage: UNK
     Dates: start: 200806, end: 2010
  4. YASMIN [Suspect]
     Active Substance: DROSPIRENONE\ETHINYL ESTRADIOL
     Indication: POLYCYSTIC OVARIES
     Dosage: UNK
     Dates: start: 200806, end: 2010
  5. NIASPAN [Concomitant]
     Active Substance: NIACIN
  6. DILANTIN [Concomitant]
     Active Substance: PHENYTOIN
  7. TRICOR [Concomitant]
     Active Substance: FENOFIBRATE
  8. OXYBUTYNIN [Concomitant]
     Active Substance: OXYBUTYNIN
  9. WELLBUTRIN [Concomitant]
     Active Substance: BUPROPION HYDROCHLORIDE
  10. DITROPAN [Concomitant]
     Active Substance: OXYBUTYNIN CHLORIDE
  11. SKELAXIN [Concomitant]
     Active Substance: METAXALONE
  12. PROTONIX [Concomitant]
     Active Substance: PANTOPRAZOLE SODIUM
  13. NEURONTIN [Concomitant]
     Active Substance: GABAPENTIN
  14. TERBUTALINE [Concomitant]
     Active Substance: TERBUTALINE

REACTIONS (10)
  - Hemiparesis [Recovered/Resolved]
  - Facial paresis [Recovered/Resolved]
  - Pain [Recovered/Resolved]
  - General physical health deterioration [Recovered/Resolved]
  - Injury [Recovered/Resolved]
  - Headache [Recovered/Resolved]
  - Dysarthria [Recovered/Resolved]
  - Abdominal pain [None]
  - Cerebrovascular accident [Recovered/Resolved]
  - Cholecystitis chronic [None]

NARRATIVE: CASE EVENT DATE: 200902
